FAERS Safety Report 9818021 (Version 1)
Quarter: 2013Q4

REPORT INFORMATION
  Report Type: Spontaneous
  Country: US (occurrence: None)
  Receive Date: 20131223
  Receipt Date: 20131223
  Transmission Date: 20140711
  Serious: No
  Sender: FDA-Public Use
  Company Number: 218967

PATIENT
  Age: 55 Year
  Sex: Male

DRUGS (1)
  1. PICATO GEL [Suspect]
     Indication: BASAL CELL CARCINOMA
     Dosage: (1 IN 1 D), TOPICAL
     Route: 061
     Dates: start: 20120907, end: 20120909

REACTIONS (8)
  - Application site burn [None]
  - Erythema [None]
  - Application site exfoliation [None]
  - Staphylococcal infection [None]
  - Application site infection [None]
  - Application site pain [None]
  - Drug administered at inappropriate site [None]
  - Off label use [None]
